FAERS Safety Report 7819381-1 (Version None)
Quarter: 2011Q4

REPORT INFORMATION
  Report Type: 
  Country: None (occurrence: None)
  Receive Date: 20111018
  Receipt Date: 20100928
  Transmission Date: 20120403
  Serious: No
  Sender: FDA-Public Use
  Company Number: US-ASTRAZENECA-2010SE45750

PATIENT
  Sex: Male

DRUGS (1)
  1. SYMBICORT [Suspect]
     Indication: CHRONIC OBSTRUCTIVE PULMONARY DISEASE
     Dosage: 160/4.5 MCG, TWO PUFFS BID
     Route: 055
     Dates: start: 20100801

REACTIONS (6)
  - DRUG DOSE OMISSION [None]
  - PULMONARY FUNCTION TEST DECREASED [None]
  - SPUTUM DISCOLOURED [None]
  - INCORRECT DOSE ADMINISTERED [None]
  - DYSPNOEA [None]
  - EMPHYSEMA [None]
